FAERS Safety Report 8579446-6 (Version None)
Quarter: 2012Q3

REPORT INFORMATION
  Report Type: 
  Country: None (occurrence: None)
  Receive Date: 20120808
  Receipt Date: 20120802
  Transmission Date: 20120928
  Serious: No
  Sender: FDA-Public Use
  Company Number: US-BAYER-2012-079195

PATIENT
  Age: 79 Year
  Sex: Male
  Weight: 87.982 kg

DRUGS (5)
  1. ALEVE (CAPLET) [Suspect]
     Dosage: UNK
     Dates: start: 20060101, end: 20060101
  2. LISINOPRIL [Concomitant]
  3. METHADONE HYDROCHLORIDE [Concomitant]
  4. ASPIRIN [Concomitant]
     Indication: ISCHAEMIC HEART DISEASE PROPHYLAXIS
  5. ASPIRIN [Suspect]
     Dosage: 5 DF, ONCE
     Dates: start: 20070101, end: 20070101

REACTIONS (2)
  - DRUG INEFFECTIVE [None]
  - NO ADVERSE EVENT [None]
